FAERS Safety Report 9521416 (Version 1)
Quarter: 2013Q1

REPORT INFORMATION
  Report Type: Spontaneous
  Country: US (occurrence: None)
  Receive Date: 20130305
  Receipt Date: 20130305
  Transmission Date: 20140127
  Serious: Yes (Other)
  Sender: FDA-Public Use
  Company Number: 163-21880-12073187

PATIENT
  Sex: Male
  Weight: 47.63 kg

DRUGS (3)
  1. REVLIMID [Suspect]
     Indication: PLASMA CELL MYELOMA
     Route: 048
     Dates: start: 20120724
  2. OXYCONTIN (OXYCODONE HYDROCHLORIDE) (UNKNOWN) [Concomitant]
  3. MORPHINE (MORPHINE) (UNKNOWN) (MORPHINE) [Concomitant]

REACTIONS (2)
  - Renal failure [None]
  - Dehydration [None]
